FAERS Safety Report 4737106-3 (Version None)
Quarter: 2005Q3

REPORT INFORMATION
  Report Type: 
  Country: None (occurrence: None)
  Receive Date: 20050804
  Receipt Date: 20050726
  Transmission Date: 20060218
  Serious: Yes (Hospitalization)
  Sender: FDA-Public Use
  Company Number: DEU-2005-0001591

PATIENT
  Age: 75 Year
  Sex: Female
  Weight: 45 kg

DRUGS (1)
  1. OXYCODONE HCL [Suspect]
     Indication: BACK PAIN
     Dosage: SEE IMAGE, ORAL
     Route: 048
     Dates: end: 20050101

REACTIONS (5)
  - DEPRESSED LEVEL OF CONSCIOUSNESS [None]
  - EPILEPSY [None]
  - MUSCLE TWITCHING [None]
  - OVERDOSE [None]
  - WEIGHT DECREASED [None]
